FAERS Safety Report 7747919-1 (Version None)
Quarter: 2011Q3

REPORT INFORMATION
  Report Type: 
  Country: None (occurrence: None)
  Receive Date: 20110913
  Receipt Date: 20110628
  Transmission Date: 20111222
  Serious: No
  Sender: FDA-Public Use
  Company Number: US-ALLERGAN-1108707US

PATIENT
  Age: 51 Year
  Sex: Female

DRUGS (2)
  1. UNSPECIFIED EYE ALLERGY RELIEF DROPS [Concomitant]
     Indication: EYE ALLERGY
     Dosage: UNK
  2. LATISSE [Suspect]
     Indication: GROWTH OF EYELASHES
     Dosage: 1 GTT, UNK
     Dates: start: 20110301

REACTIONS (3)
  - TRICHORRHEXIS [None]
  - ERYTHEMA OF EYELID [None]
  - APPLICATION SITE PARAESTHESIA [None]
